FAERS Safety Report 17143656 (Version 1)
Quarter: 2019Q4

REPORT INFORMATION
  Report Type: Spontaneous
  Country: US (occurrence: US)
  Receive Date: 20191212
  Receipt Date: 20191212
  Transmission Date: 20200122
  Serious: No
  Sender: FDA-Public Use
  Company Number: US-PFIZER INC-2019533523

PATIENT
  Age: 64 Year
  Sex: Female

DRUGS (1)
  1. INLYTA [Suspect]
     Active Substance: AXITINIB
     Indication: RENAL CANCER
     Dosage: 2 MG, 2X/DAY (EVERY 12 HOURS)
     Route: 048
     Dates: start: 201911

REACTIONS (3)
  - Dyspepsia [Unknown]
  - Fatigue [Unknown]
  - Pain [Unknown]
